FAERS Safety Report 9551067 (Version 18)
Quarter: 2017Q2

REPORT INFORMATION
  Report Type: Report from Study
  Country: CA (occurrence: CA)
  Receive Date: 20130925
  Receipt Date: 20170510
  Transmission Date: 20170830
  Serious: Yes (Hospitalization, Other)
  Sender: FDA-Public Use
  Company Number: CA-ROCHE-1167682

PATIENT
  Age: 65 Year
  Sex: Female
  Weight: 89 kg

DRUGS (15)
  1. METHYLPREDNISOLONE. [Suspect]
     Active Substance: METHYLPREDNISOLONE
     Indication: PREMEDICATION
     Route: 042
     Dates: start: 20120223
  2. RITUXAN [Suspect]
     Active Substance: RITUXIMAB
     Route: 042
     Dates: start: 20121207
  3. DIPHENHYDRAMINE HCL [Concomitant]
     Active Substance: DIPHENHYDRAMINE HYDROCHLORIDE
     Indication: PREMEDICATION
     Route: 048
     Dates: start: 20120223
  4. ACETAMINOPHEN. [Concomitant]
     Active Substance: ACETAMINOPHEN
     Route: 048
     Dates: start: 20121207
  5. METOPROLOL. [Concomitant]
     Active Substance: METOPROLOL
  6. CITALOPRAM [Concomitant]
     Active Substance: CITALOPRAM HYDROBROMIDE
  7. RITUXAN [Suspect]
     Active Substance: RITUXIMAB
     Indication: RHEUMATOID ARTHRITIS
     Dosage: DATE OF LAST DOSE: 12/NOV/2013?DATE OF MOST RECENT RITUXIMAB INFUSION: 02/FEB/2016, 08/MAY/2017
     Route: 042
     Dates: start: 20120223
  8. ASPIRIN. [Concomitant]
     Active Substance: ASPIRIN
  9. ATIVAN [Concomitant]
     Active Substance: LORAZEPAM
     Route: 065
  10. CRESTOR [Concomitant]
     Active Substance: ROSUVASTATIN CALCIUM
  11. ACETAMINOPHEN. [Concomitant]
     Active Substance: ACETAMINOPHEN
     Indication: PREMEDICATION
     Route: 048
     Dates: start: 20120223
  12. METFORMIN [Concomitant]
     Active Substance: METFORMIN HYDROCHLORIDE
     Indication: TYPE 2 DIABETES MELLITUS
  13. METHOTREXATE. [Concomitant]
     Active Substance: METHOTREXATE
  14. LEUCOVORIN. [Concomitant]
     Active Substance: LEUCOVORIN
  15. INSULIN [Concomitant]
     Active Substance: INSULIN NOS

REACTIONS (23)
  - Emotional distress [Unknown]
  - Blood pressure increased [Unknown]
  - Blood glucose abnormal [Unknown]
  - Cerebral haemorrhage [Unknown]
  - Concussion [Unknown]
  - Ear pruritus [Recovered/Resolved]
  - Pain [Not Recovered/Not Resolved]
  - Infusion related reaction [Unknown]
  - Incision site infection [Unknown]
  - Blood glucose increased [Unknown]
  - Impaired gastric emptying [Not Recovered/Not Resolved]
  - Hip fracture [Unknown]
  - Blood pressure increased [Unknown]
  - Viral upper respiratory tract infection [Not Recovered/Not Resolved]
  - Joint swelling [Not Recovered/Not Resolved]
  - Oesophageal rupture [Unknown]
  - Knee arthroplasty [Unknown]
  - Pruritus [Recovered/Resolved]
  - Ear infection [Recovered/Resolved]
  - Pharyngitis [Recovered/Resolved]
  - Arthralgia [Not Recovered/Not Resolved]
  - Fall [Unknown]
  - Blood pressure fluctuation [Unknown]

NARRATIVE: CASE EVENT DATE: 20121207
